FAERS Safety Report 18623449 (Version 1)
Quarter: 2020Q4

REPORT INFORMATION
  Report Type: Report from Study
  Country: US (occurrence: US)
  Receive Date: 20201216
  Receipt Date: 20201216
  Transmission Date: 20210114
  Serious: Yes (Other)
  Sender: FDA-Public Use
  Company Number: US-JAZZ-2020-US-016955

PATIENT

DRUGS (1)
  1. XYREM [Suspect]
     Active Substance: SODIUM OXYBATE
     Indication: NARCOLEPSY
     Dosage: UNKNOWN DOSE AND DURATION
     Route: 048

REACTIONS (4)
  - Fibromyalgia [Unknown]
  - Autoimmune disorder [Unknown]
  - Sleep apnoea syndrome [Unknown]
  - Obesity [Unknown]
